FAERS Safety Report 7426589-6 (Version None)
Quarter: 2011Q2

REPORT INFORMATION
  Report Type: 
  Country: None (occurrence: None)
  Receive Date: 20110420
  Receipt Date: 20110414
  Transmission Date: 20111010
  Serious: Yes (Other)
  Sender: FDA-Public Use
  Company Number: US-GENZYME-THYM-1002413

PATIENT
  Age: 57 Year
  Sex: Male

DRUGS (6)
  1. THYMOGLOBULIN [Suspect]
     Indication: PROPHYLAXIS AGAINST TRANSPLANT REJECTION
     Dosage: UNK G, UNK
     Route: 042
  2. DEXTRAN 40 [Suspect]
     Indication: OEDEMA
     Dosage: 180 G, UNK
     Route: 042
  3. MYCOPHENOLATE MOFETIL [Concomitant]
     Indication: PROPHYLAXIS AGAINST TRANSPLANT REJECTION
  4. METHYLPREDNISOLONE [Concomitant]
     Indication: PROPHYLAXIS AGAINST TRANSPLANT REJECTION
  5. DEXTRAN 40 [Suspect]
     Indication: BLOOD OSMOLARITY
  6. INSULIN [Concomitant]
     Indication: DIABETES MELLITUS

REACTIONS (1)
  - NEPHROTIC SYNDROME [None]
